FAERS Safety Report 8326028-7 (Version None)
Quarter: 2012Q2

REPORT INFORMATION
  Report Type: 
  Country: None (occurrence: None)
  Receive Date: 20120501
  Receipt Date: 20120426
  Transmission Date: 20120825
  Serious: Yes (Other)
  Sender: FDA-Public Use
  Company Number: GB-GLAXOSMITHKLINE-B0798472A

PATIENT

DRUGS (5)
  1. ARZERRA [Suspect]
     Indication: PRODUCT USED FOR UNKNOWN INDICATION
     Route: 042
  2. VINCRISTINE [Concomitant]
  3. ADRIAMYCIN PFS [Concomitant]
  4. PREDNISONE [Concomitant]
  5. CYCLOPHOSPHAMIDE [Concomitant]

REACTIONS (1)
  - PULMONARY FIBROSIS [None]
